FAERS Safety Report 23179874 (Version 5)
Quarter: 2024Q2

REPORT INFORMATION
  Report Type: Spontaneous
  Country: US (occurrence: US)
  Receive Date: 20231114
  Receipt Date: 20240618
  Transmission Date: 20240716
  Serious: No
  Sender: FDA-Public Use
  Company Number: US-BRISTOL-MYERS SQUIBB COMPANY-2023-162748

PATIENT
  Age: 71 Year
  Sex: Female
  Weight: 58.06 kg

DRUGS (3)
  1. REVLIMID [Suspect]
     Active Substance: LENALIDOMIDE
     Indication: Plasma cell myeloma
     Dosage: 3WKSON,1WKOFF
     Route: 048
  2. REVLIMID [Suspect]
     Active Substance: LENALIDOMIDE
     Route: 048
  3. REVLIMID [Suspect]
     Active Substance: LENALIDOMIDE
     Dosage: FREQUENCY: EVERY OTHER DAY
     Route: 048

REACTIONS (6)
  - Tremor [Recovering/Resolving]
  - Hypotension [Not Recovered/Not Resolved]
  - White blood cell count increased [Unknown]
  - Illness [Recovering/Resolving]
  - Fatigue [Recovering/Resolving]
  - Off label use [Unknown]
